FAERS Safety Report 7169964-X (Version None)
Quarter: 2010Q4

REPORT INFORMATION
  Report Type: 
  Country: None (occurrence: None)
  Receive Date: 20101203
  Receipt Date: 20101119
  Transmission Date: 20110411
  Serious: Yes (Other)
  Sender: FDA-Public Use
  Company Number: 022829

PATIENT
  Age: 32 Year
  Sex: Male

DRUGS (7)
  1. LACOSAMIDE [Suspect]
     Indication: CONVULSION
     Dosage: (100 MG Q1H INTRAVENOUS)
     Route: 042
     Dates: start: 20090620, end: 20090622
  2. LEVETIRACETAM [Suspect]
     Dosage: (500 MG BID ORAL)
     Route: 048
  3. TOPIRAMATE [Concomitant]
  4. ACETAMINOPHEN [Concomitant]
  5. LORAZEPAM [Concomitant]
  6. ESOMEPRAZOLE [Concomitant]
  7. ENOXAPARIN SODIUM [Concomitant]

REACTIONS (2)
  - BRADYCARDIA [None]
  - PSYCHOTIC DISORDER [None]
